FAERS Safety Report 5638423-5 (Version None)
Quarter: 2008Q1

REPORT INFORMATION
  Report Type: 
  Country: None (occurrence: None)
  Receive Date: 20080226
  Receipt Date: 20080220
  Transmission Date: 20080703
  Serious: Yes (Other)
  Sender: FDA-Public Use
  Company Number: US-GENENTECH-256477

PATIENT
  Age: 55 Year
  Sex: Female

DRUGS (4)
  1. AVASTIN [Suspect]
     Indication: NON-SMALL CELL LUNG CANCER
  2. CARBOPLATIN [Concomitant]
     Indication: NON-SMALL CELL LUNG CANCER
  3. TAXOL [Concomitant]
     Indication: NON-SMALL CELL LUNG CANCER
  4. STEROIDS (UNK INGREDIENTS) [Concomitant]
     Indication: PREMEDICATION

REACTIONS (1)
  - WHEEZING [None]
